FAERS Safety Report 11238986 (Version 1)
Quarter: 2015Q2

REPORT INFORMATION
  Report Type: Spontaneous
  Country: PT (occurrence: None)
  Receive Date: 20150630
  Receipt Date: 20150630
  Transmission Date: 20150821
  Serious: Yes (Hospitalization)
  Sender: FDA-Public Use
  Company Number: PT-2015VAL000418

PATIENT
  Age: 65 Year
  Sex: Female

DRUGS (5)
  1. CALCITRIOL (CALCITRIOL) UNKNOWN [Suspect]
     Active Substance: CALCITRIOL
     Indication: OSTEOPENIA
  2. PREDNISOLONE. [Concomitant]
     Active Substance: PREDNISOLONE
  3. CALCIUM [Concomitant]
     Active Substance: CALCIUM
  4. ETANERCEPT [Concomitant]
     Active Substance: ETANERCEPT
  5. SULFASALAZINE. [Concomitant]
     Active Substance: SULFASALAZINE

REACTIONS (4)
  - Off label use [None]
  - Hypocalcaemia [None]
  - Acute kidney injury [None]
  - Hypercalcaemia [None]
